FAERS Safety Report 22524044 (Version 1)
Quarter: 2023Q2

REPORT INFORMATION
  Report Type: Spontaneous
  Country: US (occurrence: US)
  Receive Date: 20230606
  Receipt Date: 20230606
  Transmission Date: 20230721
  Serious: Yes (Other)
  Sender: FDA-Public Use
  Company Number: US-SAGENT PHARMACEUTICALS-2023SAG000094

PATIENT
  Age: 60 Year
  Sex: Male

DRUGS (1)
  1. THIAMINE HYDROCHLORIDE [Suspect]
     Active Substance: THIAMINE HYDROCHLORIDE
     Indication: Nicotinic acid deficiency
     Dosage: HIGH-DOSE
     Route: 065

REACTIONS (2)
  - Alcoholic encephalopathy [Recovering/Resolving]
  - Condition aggravated [Recovering/Resolving]
